FAERS Safety Report 19828996 (Version 1)
Quarter: 2021Q3

REPORT INFORMATION
  Report Type: Spontaneous
  Country: FR (occurrence: FR)
  Receive Date: 20210914
  Receipt Date: 20210914
  Transmission Date: 20211014
  Serious: Yes (Death)
  Sender: FDA-Public Use
  Company Number: FR-MYLANLABS-2021M1061668

PATIENT
  Age: 89 Year
  Sex: Male

DRUGS (4)
  1. UROREC [Concomitant]
     Active Substance: SILODOSIN
     Dosage: UNK
  2. AVODART [Concomitant]
     Active Substance: DUTASTERIDE
     Dosage: UNK
  3. CITALOPRAM [Suspect]
     Active Substance: CITALOPRAM HYDROBROMIDE
     Indication: DEPRESSION
     Dosage: 10 MILLIGRAM, QD (ANNEES)
     Route: 048
  4. PREVISCAN                          /00789001/ [Suspect]
     Active Substance: FLUINDIONE
     Indication: THROMBOSIS PROPHYLAXIS
     Dosage: 1.5 DOSAGE FORM, QD (ANNEE)
     Route: 048

REACTIONS (1)
  - Cerebral haematoma [Fatal]

NARRATIVE: CASE EVENT DATE: 20210405
